FAERS Safety Report 9562406 (Version 2)
Quarter: 2013Q4

REPORT INFORMATION
  Report Type: Spontaneous
  Country: JP (occurrence: JP)
  Receive Date: 20130927
  Receipt Date: 20131003
  Transmission Date: 20140711
  Serious: Yes (Death)
  Sender: FDA-Public Use
  Company Number: JP-JNJFOC-20130915193

PATIENT
  Age: 22 Year
  Sex: Male

DRUGS (3)
  1. TOPINA [Suspect]
     Indication: JUVENILE MYOCLONIC EPILEPSY
     Route: 048
  2. DEPAKENE [Suspect]
     Indication: JUVENILE MYOCLONIC EPILEPSY
     Route: 048
  3. DEPAKENE [Suspect]
     Indication: JUVENILE MYOCLONIC EPILEPSY
     Route: 048

REACTIONS (1)
  - Sudden unexplained death in epilepsy [Fatal]
